FAERS Safety Report 11808344 (Version 2)
Quarter: 2016Q1

REPORT INFORMATION
  Report Type: Spontaneous
  Country: GB (occurrence: GB)
  Receive Date: 20151207
  Receipt Date: 20160304
  Transmission Date: 20160525
  Serious: Yes (Hospitalization)
  Sender: FDA-Public Use
  Company Number: GB-IMPAX LABORATORIES, INC-2015-IPXL-01226

PATIENT
  Age: 65 Year
  Sex: Male

DRUGS (4)
  1. RAMIPRIL. [Suspect]
     Active Substance: RAMIPRIL
     Indication: BLOOD PRESSURE ABNORMAL
     Route: 065
  2. INDAPAMIDE. [Suspect]
     Active Substance: INDAPAMIDE
     Indication: BLOOD PRESSURE ABNORMAL
     Route: 065
  3. CITALOPRAM [Suspect]
     Active Substance: CITALOPRAM HYDROBROMIDE
     Indication: AFFECTIVE DISORDER
     Dosage: UNK
     Route: 065
  4. LERCANIDIPINE [Suspect]
     Active Substance: LERCANIDIPINE
     Indication: BLOOD PRESSURE ABNORMAL
     Route: 065

REACTIONS (3)
  - Parkinsonism [Recovering/Resolving]
  - Osmotic demyelination syndrome [Recovered/Resolved]
  - Inappropriate antidiuretic hormone secretion [Recovered/Resolved]
